FAERS Safety Report 8250997-7 (Version None)
Quarter: 2012Q2

REPORT INFORMATION
  Report Type: 
  Country: None (occurrence: None)
  Receive Date: 20120402
  Receipt Date: 20120329
  Transmission Date: 20120825
  Serious: No
  Sender: FDA-Public Use
  Company Number: US-PFIZER INC-2012081135

PATIENT
  Sex: Female
  Weight: 81.633 kg

DRUGS (4)
  1. ACETYLSALICYLIC ACID SRT [Suspect]
     Indication: PAIN
     Dosage: UNK
  2. MULTI-VITAMINS [Concomitant]
     Dosage: UNK, DAILY
  3. HYDROCHLOROTHIAZIDE [Concomitant]
     Dosage: 25 MG, DAILY
  4. CELEBREX [Suspect]
     Indication: PAIN
     Dosage: 200 MG, DAILY
     Route: 048
     Dates: start: 20120327

REACTIONS (6)
  - BACK PAIN [None]
  - MALAISE [None]
  - DRUG INEFFECTIVE [None]
  - EPISTAXIS [None]
  - MUSCULOSKELETAL CHEST PAIN [None]
  - MUSCULOSKELETAL PAIN [None]
